FAERS Safety Report 9775872 (Version 1)
Quarter: 2013Q4

REPORT INFORMATION
  Report Type: Spontaneous
  Country: BR (occurrence: BR)
  Receive Date: 20131220
  Receipt Date: 20131220
  Transmission Date: 20140711
  Serious: Yes (Other)
  Sender: FDA-Public Use
  Company Number: BR-GLAXOSMITHKLINE-B0947009A

PATIENT
  Sex: Female

DRUGS (2)
  1. ANTAK [Suspect]
     Route: 048
  2. MOTILIUM [Concomitant]
     Indication: ILL-DEFINED DISORDER

REACTIONS (7)
  - Tooth infection [Recovered/Resolved]
  - Drug ineffective [Unknown]
  - Abdominal pain upper [Not Recovered/Not Resolved]
  - Gastritis [Not Recovered/Not Resolved]
  - Ill-defined disorder [Not Recovered/Not Resolved]
  - Burning sensation [Not Recovered/Not Resolved]
  - Drug administration error [Not Recovered/Not Resolved]
